FAERS Safety Report 18367455 (Version 1)
Quarter: 2020Q4

REPORT INFORMATION
  Report Type: Spontaneous
  Country: BR (occurrence: BR)
  Receive Date: 20201009
  Receipt Date: 20201009
  Transmission Date: 20210114
  Serious: Yes (Death)
  Sender: FDA-Public Use
  Company Number: BR-JNJFOC-20201012795

PATIENT
  Sex: Male

DRUGS (1)
  1. ERFANDEL [Suspect]
     Active Substance: ERDAFITINIB
     Indication: URINARY TRACT NEOPLASM
     Route: 048

REACTIONS (1)
  - Death [Fatal]
